FAERS Safety Report 24699776 (Version 1)
Quarter: 2024Q4

REPORT INFORMATION
  Report Type: Spontaneous
  Country: GB (occurrence: GB)
  Receive Date: 20241205
  Receipt Date: 20241205
  Transmission Date: 20250114
  Serious: Yes (Other)
  Sender: Unknown Manufacturer
  Company Number: None

PATIENT
  Age: 53 Year
  Sex: Female
  Weight: 86 kg

DRUGS (2)
  1. ATORVASTATIN [Suspect]
     Active Substance: ATORVASTATIN
     Indication: Blood cholesterol increased
     Dosage: 20MG A DAY
  2. RAMIPRIL [Concomitant]
     Active Substance: RAMIPRIL
     Indication: Hypertension
     Dates: start: 20240305

REACTIONS (1)
  - Uterine haemorrhage [Not Recovered/Not Resolved]

NARRATIVE: CASE EVENT DATE: 20241107
